FAERS Safety Report 8158243-X (Version None)
Quarter: 2012Q1

REPORT INFORMATION
  Report Type: 
  Country: None (occurrence: None)
  Receive Date: 20120223
  Receipt Date: 20120214
  Transmission Date: 20120608
  Serious: Yes (Hospitalization)
  Sender: FDA-Public Use
  Company Number: US-BIOGENIDEC-2011BI040613

PATIENT
  Age: 63 Year
  Sex: Female

DRUGS (20)
  1. TYSABRI [Suspect]
     Route: 042
     Dates: start: 20120104, end: 20120104
  2. BACLOFEN [Concomitant]
     Route: 048
  3. MULTIVITAMIN WITH MINERALS [Concomitant]
  4. ZINC OXIDE [Concomitant]
     Route: 061
  5. ZINC SULFATE [Concomitant]
  6. VITAMIN D [Concomitant]
  7. LOVASTATIN [Concomitant]
     Route: 048
  8. LOVAZA [Concomitant]
     Route: 048
  9. CHOLECALCIFEROL [Concomitant]
     Route: 048
  10. HYPROMELLOSE [Concomitant]
     Route: 047
  11. VITAMIN A [Concomitant]
     Route: 048
  12. GABAPENTIN [Concomitant]
     Route: 048
  13. POTASSIUM CHLORIDE ER [Concomitant]
     Route: 048
  14. SENNA [Concomitant]
     Route: 048
  15. TYSABRI [Suspect]
     Indication: MULTIPLE SCLEROSIS
     Route: 042
     Dates: start: 20090129, end: 20110816
  16. DOCUSATE [Concomitant]
  17. ASCORBIC ACID [Concomitant]
     Route: 048
  18. LISINOPRIL [Concomitant]
     Route: 048
  19. ACETAMINOPHEN [Concomitant]
     Route: 048
  20. ALBUTEROL [Concomitant]
     Route: 055

REACTIONS (3)
  - DECUBITUS ULCER [None]
  - LUNG SQUAMOUS CELL CARCINOMA STAGE UNSPECIFIED [None]
  - PNEUMONIA [None]
